FAERS Safety Report 6707006-8 (Version None)
Quarter: 2010Q2

REPORT INFORMATION
  Report Type: 
  Country: None (occurrence: None)
  Receive Date: 20100430
  Receipt Date: 20100430
  Transmission Date: 20101027
  Serious: No
  Sender: FDA-Public Use
  Company Number: None

PATIENT
  Age: 51 Year
  Sex: Female
  Weight: 46.7205 kg

DRUGS (1)
  1. NEUTROGENA ON -THE -SPOT ACNE TREATMENT MAXIMUM STRENGTH EFFECTIVENESS [Suspect]
     Indication: ACNE
     Dosage: 2 TIMES
     Dates: start: 20100423, end: 20100424

REACTIONS (4)
  - ERYTHEMA [None]
  - PRURITUS [None]
  - SWELLING FACE [None]
  - TENDERNESS [None]
